FAERS Safety Report 20461802 (Version 1)
Quarter: 2022Q1

REPORT INFORMATION
  Report Type: Spontaneous
  Country: US (occurrence: None)
  Receive Date: 20220211
  Receipt Date: 20220211
  Transmission Date: 20220423
  Serious: Yes (Life-Threatening)
  Sender: FDA-Public Use
  Company Number: None

PATIENT
  Age: 24 Year
  Sex: Female

DRUGS (2)
  1. THIAMINE [Suspect]
     Active Substance: THIAMINE
  2. VITAMINS [Suspect]
     Active Substance: VITAMINS

REACTIONS (7)
  - Nausea [None]
  - Flushing [None]
  - Dyspnoea [None]
  - Visual impairment [None]
  - Heart rate increased [None]
  - Infusion related reaction [None]
  - Therapy cessation [None]

NARRATIVE: CASE EVENT DATE: 20220202
